FAERS Safety Report 20041050 (Version 2)
Quarter: 2024Q1

REPORT INFORMATION
  Report Type: Spontaneous
  Country: US (occurrence: US)
  Receive Date: 20211107
  Receipt Date: 20240226
  Transmission Date: 20240410
  Serious: No
  Sender: FDA-Public Use
  Company Number: US-SA-SAC20211102001427

PATIENT
  Age: 32 Year
  Sex: Female
  Weight: 137.8 kg

DRUGS (1)
  1. DUPIXENT [Suspect]
     Active Substance: DUPILUMAB
     Indication: Dermatitis atopic
     Dosage: 300 MG, QOW
     Route: 058
     Dates: start: 202106

REACTIONS (4)
  - Blister [Unknown]
  - Skin fissures [Unknown]
  - Rash [Unknown]
  - Product dose omission issue [Unknown]

NARRATIVE: CASE EVENT DATE: 20210101
